FAERS Safety Report 5920202-2 (Version None)
Quarter: 2008Q4

REPORT INFORMATION
  Report Type: 
  Country: None (occurrence: None)
  Receive Date: 20081016
  Receipt Date: 20070831
  Transmission Date: 20090506
  Serious: No
  Sender: FDA-Public Use
  Company Number: A0678124A

PATIENT
  Age: 48 Year
  Sex: Female

DRUGS (1)
  1. CEFTIN [Suspect]
     Indication: STAPHYLOCOCCAL INFECTION
     Dosage: 500MG TWICE PER DAY
     Route: 048
     Dates: start: 20070512, end: 20070604

REACTIONS (1)
  - DRUG INEFFECTIVE [None]
